FAERS Safety Report 13634636 (Version 1)
Quarter: 2017Q2

REPORT INFORMATION
  Report Type: Spontaneous
  Country: US (occurrence: US)
  Receive Date: 20170531
  Receipt Date: 20170531
  Transmission Date: 20170830
  Serious: No
  Sender: FDA-Public Use
  Company Number: US-ASTELLAS-1642814

PATIENT
  Sex: Female

DRUGS (3)
  1. TARCEVA [Suspect]
     Active Substance: ERLOTINIB HYDROCHLORIDE
     Indication: LUNG NEOPLASM MALIGNANT
     Dosage: DATE OF MOST RECENT DOSE : 05/SEP/2015 ADMINISTERED WITH SAME DOSE
     Route: 048
     Dates: start: 20150815
  2. SYNTHROID [Concomitant]
     Active Substance: LEVOTHYROXINE SODIUM
     Route: 065
  3. TARCEVA [Suspect]
     Active Substance: ERLOTINIB HYDROCHLORIDE
     Route: 048
     Dates: start: 20150905

REACTIONS (9)
  - Rash [Unknown]
  - Alopecia [Unknown]
  - Dry skin [Unknown]
  - Fatigue [Unknown]
  - Diarrhoea [Unknown]
  - Drug dose omission [Unknown]
  - Feeding disorder [Unknown]
  - Memory impairment [Unknown]
  - Malaise [Unknown]
